FAERS Safety Report 20113909 (Version 2)
Quarter: 2021Q4

REPORT INFORMATION
  Report Type: Other
  Country: US (occurrence: None)
  Receive Date: 20211125
  Receipt Date: 20211126
  Transmission Date: 20220303
  Serious: Yes (Other)
  Sender: FDA-Public Use
  Company Number: US-ROCHE-2963229

PATIENT
  Sex: Female

DRUGS (15)
  1. RITUXAN [Suspect]
     Active Substance: RITUXIMAB
     Indication: Rheumatoid arthritis
     Dosage: ON WEEK(S) 0 AND WEEK(S) 2 EVERY 6 MONTH(S)
     Route: 041
  2. RITUXAN [Suspect]
     Active Substance: RITUXIMAB
     Indication: Cutaneous lupus erythematosus
  3. RITUXAN [Suspect]
     Active Substance: RITUXIMAB
     Indication: Osteoporosis
  4. RITUXAN [Suspect]
     Active Substance: RITUXIMAB
     Indication: Fibromyalgia
  5. PREDNISONE [Concomitant]
     Active Substance: PREDNISONE
  6. OLUMIANT [Concomitant]
     Active Substance: BARICITINIB
  7. FERROUS SULFATE [Concomitant]
     Active Substance: FERROUS SULFATE
  8. ALPRAZOLAM [Concomitant]
     Active Substance: ALPRAZOLAM
  9. ELIQUIS [Concomitant]
     Active Substance: APIXABAN
  10. BENZONATATE [Concomitant]
     Active Substance: BENZONATATE
  11. LEVOFLOXACIN [Concomitant]
     Active Substance: LEVOFLOXACIN
  12. ZOLPIDEM [Concomitant]
     Active Substance: ZOLPIDEM TARTRATE
  13. ESCITALOPRAM [Concomitant]
     Active Substance: ESCITALOPRAM OXALATE
  14. MEPERIDINE [Concomitant]
     Active Substance: MEPERIDINE
  15. PROLIA [Concomitant]
     Active Substance: DENOSUMAB

REACTIONS (2)
  - Systemic lupus erythematosus [Unknown]
  - Cough [Unknown]
